FAERS Safety Report 11202699 (Version 1)
Quarter: 2015Q2

REPORT INFORMATION
  Report Type: Spontaneous
  Country: CH (occurrence: CH)
  Receive Date: 20150619
  Receipt Date: 20150619
  Transmission Date: 20150821
  Serious: Yes (Hospitalization, Disabling)
  Sender: FDA-Public Use
  Company Number: CH-BAYER-2015-308370

PATIENT
  Age: 22 Year
  Sex: Female
  Weight: 70 kg

DRUGS (2)
  1. ARTHROTEC [Concomitant]
     Active Substance: DICLOFENAC SODIUM\MISOPROSTOL
     Dosage: UNK
     Dates: start: 20150427, end: 20150427
  2. JAYDESS [Suspect]
     Active Substance: LEVONORGESTREL
     Indication: CONTRACEPTION
     Dosage: 14 MCG/24HR, CONT
     Route: 015
     Dates: start: 20150427, end: 20150523

REACTIONS (4)
  - Abdominal discomfort [Recovering/Resolving]
  - Salpingo-oophoritis [Recovered/Resolved]
  - Abdominal pain lower [Recovered/Resolved]
  - Dyspareunia [Recovering/Resolving]

NARRATIVE: CASE EVENT DATE: 2015
